FAERS Safety Report 20303153 (Version 1)
Quarter: 2022Q1

REPORT INFORMATION
  Report Type: Spontaneous
  Country: CN (occurrence: None)
  Receive Date: 20220106
  Receipt Date: 20220106
  Transmission Date: 20220423
  Serious: Yes (Life-Threatening)
  Sender: FDA-Public Use
  Company Number: 2022A002124

PATIENT
  Age: 1591 Day
  Sex: Female
  Weight: 15.5 kg

DRUGS (2)
  1. BUDESONIDE [Suspect]
     Active Substance: BUDESONIDE
     Indication: Bronchitis
     Route: 055
     Dates: start: 20211211, end: 20211211
  2. TERBUTALINE SULFATE [Suspect]
     Active Substance: TERBUTALINE SULFATE
     Indication: Bronchitis
     Route: 055
     Dates: start: 20211211, end: 20211211

REACTIONS (3)
  - Abdominal pain [Recovering/Resolving]
  - Vomiting [Recovering/Resolving]
  - Crying [Recovering/Resolving]

NARRATIVE: CASE EVENT DATE: 20211211
